FAERS Safety Report 7156643-8 (Version None)
Quarter: 2010Q4

REPORT INFORMATION
  Report Type: 
  Country: None (occurrence: None)
  Receive Date: 20101214
  Receipt Date: 20100712
  Transmission Date: 20110411
  Serious: No
  Sender: FDA-Public Use
  Company Number: US-ASTRAZENECA-2007UW29035

PATIENT
  Age: 72 Year
  Sex: Male
  Weight: 72.6 kg

DRUGS (4)
  1. CRESTOR [Suspect]
     Indication: HYPERCHOLESTEROLAEMIA
     Route: 048
     Dates: start: 20070101
  2. NORVASC [Concomitant]
     Indication: BLOOD PRESSURE
  3. CALCIUM PLUS [Concomitant]
  4. ASPIRIN [Concomitant]

REACTIONS (3)
  - ALOPECIA [None]
  - NO ADVERSE EVENT [None]
  - PRURITUS [None]
